FAERS Safety Report 12365393 (Version 1)
Quarter: 2016Q2

REPORT INFORMATION
  Report Type: Spontaneous
  Country: US (occurrence: None)
  Receive Date: 20160512
  Receipt Date: 20160512
  Transmission Date: 20160815
  Serious: No
  Sender: FDA-Public Use
  Company Number: None

PATIENT
  Age: 15 Year
  Sex: Female
  Weight: 61.24 kg

DRUGS (3)
  1. FLINTSTONES VITAMINS [Concomitant]
  2. SERTRALINE 100MG AUROBINDO [Suspect]
     Active Substance: SERTRALINE HYDROCHLORIDE
     Indication: ANXIETY
     Dosage: 1 TABLET(S) ONCE A DAY TAKEN BY MOUTH
     Route: 048
     Dates: start: 20160211, end: 20160511
  3. DULERA [Concomitant]
     Active Substance: FORMOTEROL FUMARATE DIHYDRATE\MOMETASONE FUROATE

REACTIONS (12)
  - Fatigue [None]
  - Mood altered [None]
  - Feeling abnormal [None]
  - Dizziness [None]
  - Asthenia [None]
  - Apathy [None]
  - Headache [None]
  - Anhedonia [None]
  - Educational problem [None]
  - Nausea [None]
  - Diplopia [None]
  - Insomnia [None]

NARRATIVE: CASE EVENT DATE: 20160430
